FAERS Safety Report 23504176 (Version 1)
Quarter: 2024Q1

REPORT INFORMATION
  Report Type: Spontaneous
  Country: US (occurrence: None)
  Receive Date: 20240208
  Receipt Date: 20240208
  Transmission Date: 20240409
  Serious: No
  Sender: FDA-Public Use
  Company Number: None

PATIENT
  Sex: Female
  Weight: 59.4 kg

DRUGS (2)
  1. DUPIXENT [Suspect]
     Active Substance: DUPILUMAB
     Indication: Pruritus
  2. DUPIXENT [Suspect]
     Active Substance: DUPILUMAB
     Indication: Diabetes mellitus

REACTIONS (12)
  - Ocular hyperaemia [None]
  - Eye swelling [None]
  - Myalgia [None]
  - Oral herpes [None]
  - Bone pain [None]
  - Malaise [None]
  - Pain [None]
  - Arthralgia [None]
  - Limb injury [None]
  - Arthralgia [None]
  - Joint range of motion decreased [None]
  - Adverse drug reaction [None]
